APPROVED DRUG PRODUCT: LOPERAMIDE HYDROCHLORIDE
Active Ingredient: LOPERAMIDE HYDROCHLORIDE
Strength: 2MG
Dosage Form/Route: CAPSULE;ORAL
Application: A213070 | Product #001
Applicant: ONESOURCE SPECIALTY PTE LTD
Approved: Aug 11, 2021 | RLD: No | RS: No | Type: OTC